FAERS Safety Report 13976397 (Version 4)
Quarter: 2017Q4

REPORT INFORMATION
  Report Type: Spontaneous
  Country: IE (occurrence: IE)
  Receive Date: 20170915
  Receipt Date: 20171227
  Transmission Date: 20180321
  Serious: Yes (Hospitalization, Other)
  Sender: FDA-Public Use
  Company Number: IE-ORION CORPORATION ORION PHARMA-TREX2017-2608

PATIENT
  Age: 12 Year
  Sex: Female

DRUGS (2)
  1. METHOTREXATE (TRADE NAME UNKNOWN) [Suspect]
     Active Substance: METHOTREXATE
     Dosage: STRENGTH: 2.5 MG
     Route: 065
  2. TRIUMEQ [Suspect]
     Active Substance: ABACAVIR SULFATE\DOLUTEGRAVIR SODIUM\LAMIVUDINE
     Route: 065
     Dates: start: 2017

REACTIONS (7)
  - Lymphoma [Unknown]
  - Product quality issue [Unknown]
  - Dysphagia [Not Recovered/Not Resolved]
  - Product size issue [Unknown]
  - Mucosal inflammation [Unknown]
  - Oropharyngeal pain [Not Recovered/Not Resolved]
  - Ill-defined disorder [Unknown]

NARRATIVE: CASE EVENT DATE: 20170724
